FAERS Safety Report 21292140 (Version 1)
Quarter: 2022Q3

REPORT INFORMATION
  Report Type: Spontaneous
  Country: CA (occurrence: CA)
  Receive Date: 20220904
  Receipt Date: 20220904
  Transmission Date: 20221026
  Serious: Yes (Hospitalization, Other)
  Sender: FDA-Public Use
  Company Number: CA-SA-SAC20220826001619

PATIENT
  Age: 70 Year
  Sex: Male
  Weight: 128 kg

DRUGS (14)
  1. LANTUS [Suspect]
     Active Substance: INSULIN GLARGINE
     Dosage: UNK
     Route: 065
  2. ATROVENT [Suspect]
     Active Substance: IPRATROPIUM BROMIDE
     Dosage: UNK
  3. PERINDOPRIL [Suspect]
     Active Substance: PERINDOPRIL
     Dosage: UNK
  4. GLICLAZIDE [Suspect]
     Active Substance: GLICLAZIDE
     Dosage: UNK
  5. PSEUDOEPHEDRINE HYDROCHLORIDE [Suspect]
     Active Substance: PSEUDOEPHEDRINE HYDROCHLORIDE
     Dosage: UNK
  6. RIVAROXABAN [Suspect]
     Active Substance: RIVAROXABAN
     Indication: Pulmonary embolism
     Dosage: UNK
  7. ALBUTEROL SULFATE [Suspect]
     Active Substance: ALBUTEROL SULFATE
     Dosage: UNK
  8. ADVAIR HFA [Suspect]
     Active Substance: FLUTICASONE PROPIONATE\SALMETEROL XINAFOATE
     Dosage: UNK
  9. CANAGLIFLOZIN [Suspect]
     Active Substance: CANAGLIFLOZIN
     Dosage: UNK
  10. JANUVIA [Suspect]
     Active Substance: SITAGLIPTIN PHOSPHATE
     Dosage: UNK
  11. NUCALA [Suspect]
     Active Substance: MEPOLIZUMAB
     Dosage: UNK
  12. SINGULAIR [Suspect]
     Active Substance: MONTELUKAST SODIUM
     Dosage: UNK
  13. SPIRIVA [Suspect]
     Active Substance: TIOTROPIUM BROMIDE MONOHYDRATE
     Dosage: UNK
  14. ZENHALE [Concomitant]
     Active Substance: FORMOTEROL FUMARATE\MOMETASONE FUROATE
     Dosage: UNK

REACTIONS (14)
  - Asthma-chronic obstructive pulmonary disease overlap syndrome [Unknown]
  - Bronchiectasis [Unknown]
  - Chronic obstructive pulmonary disease [Unknown]
  - Deep vein thrombosis [Unknown]
  - Dyspnoea [Unknown]
  - Lung disorder [Unknown]
  - Multiple allergies [Unknown]
  - Mycobacterial infection [Unknown]
  - Obesity [Unknown]
  - Obstructive airways disorder [Unknown]
  - Productive cough [Unknown]
  - Pulmonary embolism [Unknown]
  - Renal failure [Unknown]
  - Respiratory failure [Unknown]
